FAERS Safety Report 8883736 (Version 2)
Quarter: 2013Q2

REPORT INFORMATION
  Report Type: Other
  Country: CA (occurrence: CA)
  Receive Date: 20121102
  Receipt Date: 20130619
  Transmission Date: 20140414
  Serious: Yes (Death, Other)
  Sender: FDA-Public Use
  Company Number: CA-NAPPMUNDI-DEU-2012-0009731

PATIENT
  Sex: Male

DRUGS (2)
  1. HYDROMORPHONE HCL [Suspect]
     Indication: PRODUCT USED FOR UNKNOWN INDICATION
     Dosage: UNK
     Route: 065
  2. FENTANYL [Suspect]
     Indication: PRODUCT USED FOR UNKNOWN INDICATION
     Route: 065

REACTIONS (5)
  - Drug abuse [Fatal]
  - Overdose [Fatal]
  - Foreign body reaction [Not Recovered/Not Resolved]
  - Pulmonary artery wall hypertrophy [Not Recovered/Not Resolved]
  - Pulmonary hypertension [Not Recovered/Not Resolved]
